FAERS Safety Report 8764029 (Version 1)
Quarter: 2012Q4

REPORT INFORMATION
  Report Type: Spontaneous
  Country: US (occurrence: None)
  Receive Date: 20120828
  Receipt Date: 20120828
  Transmission Date: 20130627
  Serious: Yes (Other)
  Sender: FDA-Public Use
  Company Number: 2012AP002254

PATIENT
  Sex: Female

DRUGS (6)
  1. CLOPIDOGREL TABLETS USP [Suspect]
     Indication: DRUG USE FOR UNKNOWN INDICATION
     Dosage: 75 mg;am
     Dates: start: 20120720
  2. CARVEDILOL [Concomitant]
  3. PRAVASTATIN [Concomitant]
  4. ASPIRIN [Concomitant]
  5. OMEGA 3 FISH OIL [Concomitant]
  6. CLARITIN [Concomitant]

REACTIONS (4)
  - Visual impairment [None]
  - Eyelid ptosis [None]
  - Drug hypersensitivity [None]
  - Product substitution issue [None]
